FAERS Safety Report 6339211-7 (Version None)
Quarter: 2009Q3

REPORT INFORMATION
  Report Type: 
  Country: None (occurrence: None)
  Receive Date: 20090903
  Receipt Date: 20090825
  Transmission Date: 20100115
  Serious: Yes (Other)
  Sender: FDA-Public Use
  Company Number: B0591089A

PATIENT
  Age: 38 Year
  Sex: Male

DRUGS (1)
  1. CIGANON CQ1 [Suspect]
     Indication: SMOKING CESSATION THERAPY
     Dosage: 14MG PER DAY
     Route: 062
     Dates: start: 20090812

REACTIONS (3)
  - PAINFUL RESPIRATION [None]
  - RESPIRATORY DISTRESS [None]
  - STOMATITIS [None]
